FAERS Safety Report 9329510 (Version 1)
Quarter: 2013Q2

REPORT INFORMATION
  Report Type: Report from Study
  Country: US (occurrence: US)
  Receive Date: 20130604
  Receipt Date: 20130604
  Transmission Date: 20140414
  Serious: Yes (Other)
  Sender: FDA-Public Use
  Company Number: US-ACTELION-A-US2013-83837

PATIENT
  Age: 70 Year
  Sex: Female

DRUGS (4)
  1. TRACLEER [Suspect]
     Indication: PULMONARY ARTERIAL HYPERTENSION
     Dosage: 125 MG, BID
     Route: 048
     Dates: start: 2010
  2. SPIRIVA [Concomitant]
     Dosage: UNK UNK, QD
     Route: 048
  3. OMEPRAZOLE [Concomitant]
     Dosage: 1 UNK, UNK
     Route: 048
  4. CALCIUM/VITAMIN D [Concomitant]
     Dosage: 1 UNK, UNK
     Route: 048

REACTIONS (1)
  - Breast cancer [Not Recovered/Not Resolved]
